FAERS Safety Report 15606712 (Version 1)
Quarter: 2018Q4

REPORT INFORMATION
  Report Type: Spontaneous
  Country: LS (occurrence: LS)
  Receive Date: 20181112
  Receipt Date: 20181112
  Transmission Date: 20190205
  Serious: Yes (Death, Hospitalization, Other)
  Sender: FDA-Public Use
  Company Number: PHHY2018LS147443

PATIENT
  Age: 35 Year
  Sex: Female
  Weight: 43 kg

DRUGS (7)
  1. NEVIRAPINE. [Concomitant]
     Active Substance: NEVIRAPINE
     Indication: PRODUCT USED FOR UNKNOWN INDICATION
     Route: 065
  2. BEDAQUILINE [Suspect]
     Active Substance: BEDAQUILINE
     Indication: TUBERCULOSIS
     Dosage: 200 MG, TIW
     Route: 048
     Dates: start: 20180709, end: 20181011
  3. CLOFAZIMINE [Suspect]
     Active Substance: CLOFAZIMINE
     Indication: TUBERCULOSIS
     Dosage: 100 MG, QD
     Route: 048
     Dates: start: 20180625, end: 20181011
  4. DELAMANID [Suspect]
     Active Substance: DELAMANID
     Indication: TUBERCULOSIS
     Dosage: 200 MG, QD
     Route: 048
     Dates: start: 20180824, end: 20181011
  5. LAMIVUDINE. [Concomitant]
     Active Substance: LAMIVUDINE
     Indication: PRODUCT USED FOR UNKNOWN INDICATION
     Route: 065
  6. ABACAVIR. [Concomitant]
     Active Substance: ABACAVIR
     Indication: PRODUCT USED FOR UNKNOWN INDICATION
     Route: 065
  7. LEVOFLOXACIN. [Suspect]
     Active Substance: LEVOFLOXACIN
     Indication: TUBERCULOSIS
     Dosage: 750 MG, QD
     Route: 048
     Dates: start: 20180625, end: 20181011

REACTIONS (15)
  - Peritonitis bacterial [Fatal]
  - Neurocysticercosis [Unknown]
  - Electrocardiogram QT prolonged [Unknown]
  - Toxoplasmosis [Unknown]
  - Partial seizures [Recovered/Resolved]
  - Weight decreased [Unknown]
  - Sepsis [Fatal]
  - Lymphoma [Unknown]
  - Intestinal obstruction [Unknown]
  - Tuberculoma of central nervous system [Unknown]
  - Swelling [Not Recovered/Not Resolved]
  - Vaginal cancer [Unknown]
  - Ascites [Unknown]
  - Hodgkin^s disease [Unknown]
  - Immune reconstitution inflammatory syndrome [Unknown]
